FAERS Safety Report 12632422 (Version 2)
Quarter: 2016Q3

REPORT INFORMATION
  Report Type: Spontaneous
  Country: US (occurrence: US)
  Receive Date: 20160808
  Receipt Date: 20160808
  Transmission Date: 20161109
  Serious: No
  Sender: FDA-Public Use
  Company Number: US-BEH-2016062815

PATIENT
  Age: 67 Year
  Sex: Female
  Weight: 88 kg

DRUGS (35)
  1. ACETAMINOPHEN. [Concomitant]
     Active Substance: ACETAMINOPHEN
  2. LORTAB [Concomitant]
     Active Substance: ACETAMINOPHEN\HYDROCODONE BITARTRATE
  3. MELATONIN [Concomitant]
     Active Substance: MELATONIN
  4. VITAMIN D3 [Concomitant]
     Active Substance: CHOLECALCIFEROL
  5. DIPHENHYDRAMINE. [Concomitant]
     Active Substance: DIPHENHYDRAMINE
  6. EPIPEN [Concomitant]
     Active Substance: EPINEPHRINE
  7. HYDROCODONE-ACETAMINOPHEN [Concomitant]
     Active Substance: ACETAMINOPHEN\HYDROCODONE
  8. CLONIDINE. [Concomitant]
     Active Substance: CLONIDINE
  9. FOLIC ACID. [Concomitant]
     Active Substance: FOLIC ACID
  10. LASIX [Concomitant]
     Active Substance: FUROSEMIDE
  11. OMEPRAZOLE. [Concomitant]
     Active Substance: OMEPRAZOLE
  12. FOLTX [Concomitant]
     Active Substance: CYANOCOBALAMIN CO-57\FOLIC ACID\PYRIDOXINE HYDROCHLORIDE
  13. PRENATAL [Concomitant]
     Active Substance: VITAMINS
  14. CALCIUM CARBONATE. [Concomitant]
     Active Substance: CALCIUM CARBONATE
  15. XANAX [Concomitant]
     Active Substance: ALPRAZOLAM
  16. SINEMET CR [Concomitant]
     Active Substance: CARBIDOPA\LEVODOPA
  17. VITAMIN D [Concomitant]
     Active Substance: CHOLECALCIFEROL
  18. HIZENTRA [Suspect]
     Active Substance: HUMAN IMMUNOGLOBULIN G
     Indication: IMMUNODEFICIENCY COMMON VARIABLE
     Route: 058
  19. DICYCLOMINE [Concomitant]
     Active Substance: DICYCLOMINE HYDROCHLORIDE
  20. CALCIUM+D [Concomitant]
     Active Substance: CALCIUM\VITAMIN D
  21. LYRICA [Concomitant]
     Active Substance: PREGABALIN
  22. POTASSIUM CHLORIDE. [Concomitant]
     Active Substance: POTASSIUM CHLORIDE
  23. FISH OIL [Concomitant]
     Active Substance: FISH OIL
  24. OMEGA-3 ACIDS [Concomitant]
     Active Substance: OMEGA-3 FATTY ACIDS
  25. COUMADIN [Concomitant]
     Active Substance: WARFARIN SODIUM
  26. ZYRTEC [Concomitant]
     Active Substance: CETIRIZINE HYDROCHLORIDE
  27. METOPROLOL SUCCINATE. [Concomitant]
     Active Substance: METOPROLOL SUCCINATE
  28. MAGOX [Concomitant]
  29. REGLAN [Concomitant]
     Active Substance: METOCLOPRAMIDE HYDROCHLORIDE
  30. L-M-X [Concomitant]
  31. DULOXETINE. [Concomitant]
     Active Substance: DULOXETINE
  32. CHOLECALCIFEROL [Concomitant]
     Active Substance: CHOLECALCIFEROL
  33. DILTIAZEM ER [Concomitant]
     Active Substance: DILTIAZEM
  34. PROMETHAZINE [Concomitant]
     Active Substance: PROMETHAZINE\PROMETHAZINE HYDROCHLORIDE
  35. ULTRAM [Concomitant]
     Active Substance: TRAMADOL HYDROCHLORIDE

REACTIONS (2)
  - Chromaturia [Unknown]
  - Contusion [Unknown]

NARRATIVE: CASE EVENT DATE: 201602
